FAERS Safety Report 11610682 (Version 1)
Quarter: 2015Q4

REPORT INFORMATION
  Report Type: Spontaneous
  Country: PH (occurrence: None)
  Receive Date: 20151007
  Receipt Date: 20151007
  Transmission Date: 20160304
  Serious: Yes (Hospitalization)
  Sender: FDA-Public Use
  Company Number: None

PATIENT
  Age: 63 Year
  Sex: Male
  Weight: 65 kg

DRUGS (14)
  1. LIPITOR [Suspect]
     Active Substance: ATORVASTATIN CALCIUM
     Indication: MYOCARDIAL INFARCTION
     Dates: start: 20150908, end: 20150915
  2. COLCHICINE. [Concomitant]
     Active Substance: COLCHICINE
  3. FLUIMUCIL [Concomitant]
     Active Substance: ACETYLCYSTEINE
  4. ASA [Concomitant]
     Active Substance: ASPIRIN
  5. CLOPIDOGRIL [Concomitant]
  6. CARVEBILOLOL [Concomitant]
  7. VESSEL DUE [Concomitant]
  8. VASTAREL [Concomitant]
     Active Substance: TRIMETAZIDINE DIHYDROCHLORIDE
  9. AMLODIPINE [Concomitant]
     Active Substance: AMLODIPINE BESYLATE
  10. VESICARE [Concomitant]
     Active Substance: SOLIFENACIN SUCCINATE
  11. MUCOSTA [Concomitant]
     Active Substance: REBAMIPIDE
  12. PANTOPRAZOLE [Concomitant]
     Active Substance: PANTOPRAZOLE SODIUM
  13. SEVELAMER [Concomitant]
     Active Substance: SEVELAMER
  14. CALCIUM CARBONATE. [Concomitant]
     Active Substance: CALCIUM CARBONATE

REACTIONS (6)
  - Asthenia [None]
  - Urinary tract infection fungal [None]
  - Movement disorder [None]
  - Pneumonia [None]
  - Adverse drug reaction [None]
  - Urinary retention [None]

NARRATIVE: CASE EVENT DATE: 20150904
